FAERS Safety Report 4879608-5 (Version None)
Quarter: 2006Q1

REPORT INFORMATION
  Report Type: 
  Country: None (occurrence: None)
  Receive Date: 20060111
  Receipt Date: 20051229
  Transmission Date: 20060701
  Serious: Yes (Death, Hospitalization, Other)
  Sender: FDA-Public Use
  Company Number: FR-2005-024106

PATIENT
  Age: 63 Year
  Sex: Male
  Weight: 121 kg

DRUGS (7)
  1. SOTALOL HCL [Suspect]
     Dosage: 160 MG, 1X/DAY, ORAL
     Route: 048
     Dates: end: 20050929
  2. GLUCOPHAGE [Suspect]
     Indication: DIABETES MELLITUS
     Dosage: 1000 MG, 1X/DAY, ORAL
     Route: 048
     Dates: end: 20050929
  3. APROVEL                     (IRBESARTAN) [Suspect]
     Indication: ESSENTIAL HYPERTENSION
     Dosage: 1X/DAY, ORAL
     Route: 048
     Dates: end: 20050929
  4. AMARYL [Suspect]
     Indication: DIABETES MELLITUS
     Dosage: 4 MG, 1X/DAY, ORAL
     Route: 048
     Dates: end: 20050929
  5. INDAPAMIDE [Suspect]
     Indication: ESSENTIAL HYPERTENSION
     Dosage: 1X/DAY, ORAL
     Route: 048
     Dates: end: 20050929
  6. FENOFIBRATE [Suspect]
     Indication: HYPERTRIGLYCERIDAEMIA
     Dosage: 200 MG, 1X/DAY, ORAL
     Route: 048
     Dates: end: 20050929
  7. MOXONIDINE(MOXONIDINE) [Suspect]
     Indication: ESSENTIAL HYPERTENSION
     Dosage: 4 MG, 1X/DAY, ORAL
     Route: 048
     Dates: end: 20050929

REACTIONS (23)
  - ABDOMINAL DISCOMFORT [None]
  - BLOOD AMYLASE INCREASED [None]
  - BLOOD BILIRUBIN INCREASED [None]
  - BLOOD PRESSURE ABNORMAL [None]
  - DEHYDRATION [None]
  - DIARRHOEA [None]
  - ENTERITIS [None]
  - ESCHERICHIA SEPSIS [None]
  - HAEMODIALYSIS [None]
  - HYPOVOLAEMIA [None]
  - INTESTINAL ISCHAEMIA [None]
  - LACTIC ACIDOSIS [None]
  - LIPASE INCREASED [None]
  - NAUSEA [None]
  - PO2 DECREASED [None]
  - PROCTOCOLITIS [None]
  - PROTHROMBIN TIME PROLONGED [None]
  - RENAL FAILURE ACUTE [None]
  - RESPIRATORY RATE INCREASED [None]
  - RHABDOMYOLYSIS [None]
  - SEPTIC SHOCK [None]
  - STAPHYLOCOCCAL BACTERAEMIA [None]
  - VOMITING [None]
